FAERS Safety Report 4263351-X (Version None)
Quarter: 2004Q1

REPORT INFORMATION
  Report Type: 
  Country: None (occurrence: None)
  Receive Date: 20040105
  Receipt Date: 20030814
  Transmission Date: 20041129
  Serious: Yes (Death, Hospitalization, Other)
  Sender: FDA-Public Use
  Company Number: WAES 0308USA01519

PATIENT
  Age: 78 Year
  Sex: Female

DRUGS (14)
  1. CAPTOPRIL [Concomitant]
  2. CELEBREX [Concomitant]
     Dates: end: 20000501
  3. PLAVIX [Concomitant]
  4. PEPCID AC [Concomitant]
     Route: 048
  5. LASIX [Concomitant]
  6. GLYBURIDE [Concomitant]
  7. SYNTHROID [Concomitant]
     Dates: start: 19981201
  8. LORAZEPAM [Concomitant]
  9. MECLIZINE [Concomitant]
  10. PHENERGAN TABLETS/SUPPOSITORIES [Concomitant]
  11. VIOXX [Suspect]
     Route: 048
     Dates: start: 20000318, end: 20000101
  12. VIOXX [Suspect]
     Route: 048
     Dates: start: 20001213
  13. ZOLOFT [Concomitant]
  14. AMBIEN [Concomitant]

REACTIONS (23)
  - ACUTE PULMONARY OEDEMA [None]
  - AORTIC STENOSIS [None]
  - BUNDLE BRANCH BLOCK LEFT [None]
  - CARDIAC FAILURE CONGESTIVE [None]
  - CARDIO-RESPIRATORY ARREST [None]
  - CARDIOMEGALY [None]
  - CHRONIC OBSTRUCTIVE AIRWAYS DISEASE [None]
  - COMA [None]
  - CORONARY ARTERY DISEASE [None]
  - DIABETES MELLITUS INADEQUATE CONTROL [None]
  - DIZZINESS [None]
  - DYSPEPSIA [None]
  - FAECAL OCCULT BLOOD POSITIVE [None]
  - GASTRITIS [None]
  - GASTROINTESTINAL DISORDER [None]
  - HYPERHIDROSIS [None]
  - HYPERKALAEMIA [None]
  - HYPERTENSION [None]
  - MICROCYTIC ANAEMIA [None]
  - MYOCARDIAL INFARCTION [None]
  - PEPTIC ULCER [None]
  - RENAL FAILURE [None]
  - RESPIRATORY DISTRESS [None]
